FAERS Safety Report 7456161-3 (Version None)
Quarter: 2011Q2

REPORT INFORMATION
  Report Type: 
  Country: None (occurrence: None)
  Receive Date: 20110503
  Receipt Date: 20110426
  Transmission Date: 20111010
  Serious: Yes (Other)
  Sender: FDA-Public Use
  Company Number: US-TYCO HEALTHCARE/MALLINCKRODT-T201001799

PATIENT
  Sex: Male

DRUGS (9)
  1. MAGNEVIST [Suspect]
     Dosage: UNK
     Dates: start: 20040930, end: 20040930
  2. OPTIMARK [Suspect]
     Indication: NUCLEAR MAGNETIC RESONANCE IMAGING
     Dosage: 20 ML, SINGLE
     Dates: start: 20070126, end: 20070126
  3. MAGNEVIST [Suspect]
     Dosage: 24 ML, SINGLE
     Dates: start: 20061107, end: 20061107
  4. MAGNEVIST [Suspect]
     Dosage: UNK
     Dates: start: 20040323, end: 20040323
  5. MAGNEVIST [Suspect]
     Dosage: 19.5 ML, SINGLE
     Dates: start: 20060627, end: 20060627
  6. MAGNEVIST [Suspect]
     Indication: NUCLEAR MAGNETIC RESONANCE IMAGING
     Dosage: UNK
     Dates: start: 20031001, end: 20031001
  7. OPTIMARK [Suspect]
     Dosage: 45 ML, SINGLE
     Dates: start: 20070207, end: 20070207
  8. MAGNEVIST [Suspect]
     Dosage: UNK
     Dates: start: 20050720, end: 20050720
  9. MAGNEVIST [Suspect]
     Dosage: UNK
     Dates: start: 20060111, end: 20060111

REACTIONS (7)
  - CLOSTRIDIUM DIFFICILE COLITIS [None]
  - ATRIAL FIBRILLATION [None]
  - INJURY [None]
  - FOREIGN BODY [None]
  - APHASIA [None]
  - INTERMITTENT CLAUDICATION [None]
  - NEPHROGENIC SYSTEMIC FIBROSIS [None]
